FAERS Safety Report 15985366 (Version 1)
Quarter: 2019Q1

REPORT INFORMATION
  Report Type: Spontaneous
  Country: SE (occurrence: SE)
  Receive Date: 20190220
  Receipt Date: 20190220
  Transmission Date: 20190418
  Serious: Yes (Hospitalization, Disabling)
  Sender: FDA-Public Use
  Company Number: SE-ASTRAZENECA-2019SE25465

PATIENT
  Age: 30 Year
  Sex: Female
  Weight: 80 kg

DRUGS (5)
  1. PERSANTINE [Concomitant]
     Active Substance: DIPYRIDAMOLE
     Dates: start: 2014
  2. SALURES [Concomitant]
     Active Substance: BENDROFLUMETHIAZIDE
     Dates: start: 2017
  3. LEVAXIN [Concomitant]
     Active Substance: LEVOTHYROXINE SODIUM
  4. TROMBYL [Concomitant]
     Active Substance: ASPIRIN
     Dates: start: 1997
  5. OMEPRAZOLE. [Suspect]
     Active Substance: OMEPRAZOLE
     Indication: HIATUS HERNIA
     Dosage: 20MG/D SEN 40MG/D FR???N 1997
     Route: 048
     Dates: start: 1982, end: 2018

REACTIONS (17)
  - Fungal skin infection [Recovering/Resolving]
  - Arthralgia [Recovering/Resolving]
  - Oral fungal infection [Recovering/Resolving]
  - Sleep disorder [Recovering/Resolving]
  - Pruritus generalised [Recovering/Resolving]
  - Hypomagnesaemia [Recovering/Resolving]
  - Muscular weakness [Recovering/Resolving]
  - Peripheral swelling [Recovering/Resolving]
  - Incontinence [Recovering/Resolving]
  - Depression [Recovering/Resolving]
  - Blood sodium decreased [Recovering/Resolving]
  - Flatulence [Recovering/Resolving]
  - Blood calcium decreased [Recovering/Resolving]
  - Blood potassium decreased [Recovering/Resolving]
  - Diarrhoea [Recovering/Resolving]
  - Myalgia [Recovering/Resolving]
  - Hyperhidrosis [Recovering/Resolving]

NARRATIVE: CASE EVENT DATE: 1982
